FAERS Safety Report 26216071 (Version 1)
Quarter: 2025Q4

REPORT INFORMATION
  Report Type: Spontaneous
  Country: US (occurrence: US)
  Receive Date: 20251231
  Receipt Date: 20251231
  Transmission Date: 20260118
  Serious: Yes (Hospitalization, Other)
  Sender: AMNEAL
  Company Number: US-AMNEAL PHARMACEUTICALS-2025-AMRX-04997

PATIENT
  Age: 52 Year
  Sex: Male

DRUGS (1)
  1. ADRENACLICK [Suspect]
     Active Substance: EPINEPHRINE
     Indication: Childhood asthma
     Dosage: UNK

REACTIONS (3)
  - Hypertensive emergency [Recovering/Resolving]
  - Hypokalaemia [Recovering/Resolving]
  - Acute pulmonary oedema [Recovering/Resolving]
